FAERS Safety Report 19603827 (Version 1)
Quarter: 2021Q3

REPORT INFORMATION
  Report Type: Spontaneous
  Country: CA (occurrence: CA)
  Receive Date: 20210723
  Receipt Date: 20210723
  Transmission Date: 20211014
  Serious: Yes (Hospitalization)
  Sender: FDA-Public Use
  Company Number: CA-ROCHE-2873804

PATIENT
  Age: 37 Year
  Sex: Female

DRUGS (1)
  1. RITUXIMAB. [Suspect]
     Active Substance: RITUXIMAB
     Indication: GRANULOMATOSIS WITH POLYANGIITIS
     Route: 042

REACTIONS (7)
  - Pallor [Unknown]
  - Off label use [Unknown]
  - Oxygen saturation decreased [Unknown]
  - Heart rate increased [Unknown]
  - Pancreatitis [Unknown]
  - Condition aggravated [Unknown]
  - Pseudocyst [Unknown]
